FAERS Safety Report 17403388 (Version 1)
Quarter: 2020Q1

REPORT INFORMATION
  Report Type: Spontaneous
  Country: JP (occurrence: JP)
  Receive Date: 20200211
  Receipt Date: 20200211
  Transmission Date: 20200409
  Serious: Yes (Other)
  Sender: FDA-Public Use
  Company Number: JP-FRESENIUS KABI-FK202001344

PATIENT
  Age: 63 Year
  Sex: Male

DRUGS (5)
  1. LENALIDOMIDE [Suspect]
     Active Substance: LENALIDOMIDE
     Dosage: UNKNOWN
     Route: 065
  2. DEXAMETHASONE INJECTION (MANUFACTURER UNKNOWN) [Suspect]
     Active Substance: DEXAMETHASONE
     Indication: PLASMA CELL MYELOMA
     Dosage: UNKNOWN
     Route: 065
  3. DARATUMUMAB [Suspect]
     Active Substance: DARATUMUMAB
     Indication: PLASMA CELL MYELOMA
     Dosage: UNKNOWN
     Route: 065
  4. LENALIDOMIDE [Suspect]
     Active Substance: LENALIDOMIDE
     Indication: PLASMA CELL MYELOMA
     Dosage: UNKNOWN
     Route: 065
  5. DARATUMUMAB [Suspect]
     Active Substance: DARATUMUMAB
     Dosage: UNKNOWN
     Route: 065

REACTIONS (3)
  - Angiopathy [Recovered/Resolved]
  - Cytomegalovirus infection [Recovered/Resolved]
  - Cytomegalovirus chorioretinitis [Unknown]
